FAERS Safety Report 15821487 (Version 1)
Quarter: 2019Q1

REPORT INFORMATION
  Report Type: Spontaneous
  Country: US (occurrence: US)
  Receive Date: 20190113
  Receipt Date: 20190113
  Transmission Date: 20190417
  Serious: Yes (Hospitalization)
  Sender: FDA-Public Use
  Company Number: None

PATIENT
  Age: 61 Year
  Sex: Female

DRUGS (1)
  1. COSENTYX [Suspect]
     Active Substance: SECUKINUMAB
     Indication: PSORIATIC ARTHROPATHY
     Dosage: ?          OTHER FREQUENCY:Q 4 WEEKS;?
     Route: 058
     Dates: start: 20180703

REACTIONS (2)
  - Respiratory syncytial virus infection [None]
  - Pneumonia [None]

NARRATIVE: CASE EVENT DATE: 20190112
